FAERS Safety Report 7047493-1 (Version None)
Quarter: 2010Q4

REPORT INFORMATION
  Report Type: 
  Country: None (occurrence: None)
  Receive Date: 20101015
  Receipt Date: 20101005
  Transmission Date: 20110411
  Serious: Yes (Life-Threatening, Hospitalization, Other)
  Sender: FDA-Public Use
  Company Number: US-NICOBRDEV-2010-13493

PATIENT
  Sex: Female

DRUGS (5)
  1. OXYTROL [Suspect]
     Indication: PRODUCT USED FOR UNKNOWN INDICATION
     Dosage: 1 PATCH  EVERY 4 DAYS
     Route: 062
     Dates: start: 20100811, end: 20100923
  2. OXYTROL [Suspect]
     Indication: POLLAKIURIA
  3. OXYTROL [Suspect]
     Indication: MICTURITION URGENCY
  4. OXYTROL [Suspect]
     Indication: URINARY INCONTINENCE
  5. EFFEXOR [Suspect]
     Indication: AFFECTIVE DISORDER
     Dosage: 1 TABLET (300 MG), DAILY
     Route: 048
     Dates: start: 20051001

REACTIONS (2)
  - ANAESTHETIC COMPLICATION [None]
  - DRUG INTERACTION [None]
